FAERS Safety Report 7409992-X (Version None)
Quarter: 2011Q2

REPORT INFORMATION
  Report Type: 
  Country: None (occurrence: None)
  Receive Date: 20110412
  Receipt Date: 20110408
  Transmission Date: 20111010
  Serious: Yes (Life-Threatening, Hospitalization)
  Sender: FDA-Public Use
  Company Number: US-PFIZER INC-2011054855

PATIENT
  Sex: Male
  Weight: 68.3 kg

DRUGS (10)
  1. GEMCITABINE [Suspect]
     Indication: METASTATIC RENAL CELL CARCINOMA
     Dosage: 750 MG/M2, CYCLIC: ON DAYS 1 AND 8 EVERY 21 DAYS
     Route: 042
     Dates: start: 20101228, end: 20110215
  2. SUNITINIB MALATE [Suspect]
     Indication: METASTATIC RENAL CELL CARCINOMA
     Dosage: 37.5 MG, 1X/DAY, 2 WEEKS ON, 1 WEEK OFF
     Route: 048
     Dates: start: 20101228, end: 20110221
  3. OMEGA-3 TRIGLYCERIDES [Concomitant]
  4. ALDACTONE [Concomitant]
  5. RANITIDINE [Concomitant]
  6. MOTRIN [Suspect]
  7. COMPAZINE [Concomitant]
  8. FLAXSEED OIL [Concomitant]
  9. TRAMADOL [Concomitant]
  10. CLOBAZAM [Concomitant]

REACTIONS (2)
  - ANAEMIA [None]
  - GASTROINTESTINAL HAEMORRHAGE [None]
